FAERS Safety Report 10410529 (Version 2)
Quarter: 2014Q3

REPORT INFORMATION
  Report Type: Spontaneous
  Country: US (occurrence: US)
  Receive Date: 20140826
  Receipt Date: 20140826
  Transmission Date: 20150326
  Serious: Yes (Other)
  Sender: FDA-Public Use
  Company Number: US-BRISTOL-MYERS SQUIBB COMPANY-19383934

PATIENT
  Age: 28 Year
  Sex: Female
  Weight: 58.96 kg

DRUGS (2)
  1. IBUPROFEN. [Concomitant]
     Active Substance: IBUPROFEN
  2. KENALOG-40 [Suspect]
     Active Substance: TRIAMCINOLONE ACETONIDE
     Indication: INFLAMMATION
     Route: 030
     Dates: start: 20130604, end: 20130604

REACTIONS (20)
  - Depression [Unknown]
  - Nerve injury [Unknown]
  - Dyspnoea exertional [Unknown]
  - Menorrhagia [Unknown]
  - Weight decreased [Unknown]
  - Formication [Unknown]
  - Anxiety [Unknown]
  - Amenorrhoea [Unknown]
  - Alopecia [Unknown]
  - Injection site atrophy [Unknown]
  - Acne [Unknown]
  - Urine output increased [Unknown]
  - Fatigue [Unknown]
  - Thinking abnormal [Unknown]
  - Insomnia [Unknown]
  - Hypertension [Unknown]
  - Polydipsia [Unknown]
  - Hyperhidrosis [Unknown]
  - Paraesthesia [Unknown]
  - Hair growth abnormal [Unknown]
